FAERS Safety Report 22017210 (Version 1)
Quarter: 2023Q1

REPORT INFORMATION
  Report Type: Spontaneous
  Country: PR (occurrence: US)
  Receive Date: 20230221
  Receipt Date: 20230221
  Transmission Date: 20230417
  Serious: Yes (Death, Other)
  Sender: FDA-Public Use
  Company Number: PR-BRISTOL-MYERS SQUIBB COMPANY-2023-025456

PATIENT
  Age: 68 Year
  Sex: Female
  Weight: 123.38 kg

DRUGS (3)
  1. REVLIMID [Suspect]
     Active Substance: LENALIDOMIDE
     Indication: Plasma cell myeloma
     Route: 048
     Dates: start: 20220415
  2. DEXAMETHASONE [Concomitant]
     Active Substance: DEXAMETHASONE
  3. BORTEZOMIB [Concomitant]
     Active Substance: BORTEZOMIB
     Dosage: INTRAVENOUS SOLUTION

REACTIONS (1)
  - Death [Fatal]
